FAERS Safety Report 21929110 (Version 3)
Quarter: 2023Q1

REPORT INFORMATION
  Report Type: Report from Study
  Country: CA (occurrence: CA)
  Receive Date: 20230131
  Receipt Date: 20230223
  Transmission Date: 20230418
  Serious: Yes (Death)
  Sender: FDA-Public Use
  Company Number: CA-ABBVIE-4210518

PATIENT
  Age: 78 Year
  Sex: Female

DRUGS (2)
  1. CARBIDOPA\LEVODOPA [Suspect]
     Active Substance: CARBIDOPA\LEVODOPA
     Indication: Parkinson^s disease
     Dosage: DUODOPA-LEVODOPA 20MG/ML, CARBIDOPA MONOHYDRATE 5MG/ML
     Route: 050
     Dates: start: 20190708
  2. CARBIDOPA\LEVODOPA [Suspect]
     Active Substance: CARBIDOPA\LEVODOPA
     Route: 050

REACTIONS (5)
  - Parkinson^s disease [Fatal]
  - Neuropathy peripheral [Unknown]
  - Fall [Not Recovered/Not Resolved]
  - Internal haemorrhage [Fatal]
  - Anaemia [Unknown]

NARRATIVE: CASE EVENT DATE: 20220901
